FAERS Safety Report 23333787 (Version 1)
Quarter: 2023Q4

REPORT INFORMATION
  Report Type: Spontaneous
  Country: BR (occurrence: BR)
  Receive Date: 20231223
  Receipt Date: 20231223
  Transmission Date: 20240110
  Serious: Yes (Other)
  Sender: FDA-Public Use
  Company Number: BR-CELLTRION INC.-2023BR013550

PATIENT

DRUGS (6)
  1. INFLIXIMAB [Suspect]
     Active Substance: INFLIXIMAB
     Indication: Colitis ulcerative
     Dosage: UNK
     Route: 042
     Dates: start: 20221117
  2. INFLIXIMAB [Suspect]
     Active Substance: INFLIXIMAB
     Dosage: EVERY TWO MONTHS
     Route: 042
     Dates: start: 20231107
  3. INFLIXIMAB [Suspect]
     Active Substance: INFLIXIMAB
     Dosage: 5 AMPOULES EVERY 8 WEEKS
     Route: 042
     Dates: start: 20231117
  4. ALPRAZOLAM [Concomitant]
     Active Substance: ALPRAZOLAM
     Indication: Anxiety
  5. PREGABALIN [Concomitant]
     Active Substance: PREGABALIN
     Indication: Pain
     Dosage: 1 PILL A DAY; START DATE: 3 YEARS
     Route: 048
  6. LEVOCETIRIZINE [Concomitant]
     Active Substance: LEVOCETIRIZINE
     Indication: Urticaria
     Dosage: UNK, 3/WEEK (3 TIMES A WEEK); START DATE: 1 YEAR
     Route: 048

REACTIONS (12)
  - Immunosuppression [Recovering/Resolving]
  - Bone metabolism disorder [Recovering/Resolving]
  - Pain in extremity [Recovering/Resolving]
  - Arthralgia [Recovering/Resolving]
  - Pain [Recovering/Resolving]
  - Diverticulitis [Recovering/Resolving]
  - Impaired work ability [Recovering/Resolving]
  - Dengue fever [Unknown]
  - Rash macular [Unknown]
  - Diarrhoea [Unknown]
  - Intentional dose omission [Unknown]
  - Therapeutic response shortened [Unknown]

NARRATIVE: CASE EVENT DATE: 20230627
